FAERS Safety Report 7730553-7 (Version None)
Quarter: 2011Q3

REPORT INFORMATION
  Report Type: 
  Country: None (occurrence: None)
  Receive Date: 20110906
  Receipt Date: 20110901
  Transmission Date: 20111222
  Serious: Yes (Hospitalization)
  Sender: FDA-Public Use
  Company Number: US-GILEAD-2011-0043491

PATIENT
  Sex: Female

DRUGS (2)
  1. LETAIRIS [Suspect]
  2. LETAIRIS [Suspect]
     Indication: PRODUCT USED FOR UNKNOWN INDICATION
     Route: 048
     Dates: end: 20110812

REACTIONS (2)
  - OXYGEN SATURATION DECREASED [None]
  - DYSPNOEA [None]
